FAERS Safety Report 6478773-6 (Version None)
Quarter: 2009Q4

REPORT INFORMATION
  Report Type: 
  Country: None (occurrence: None)
  Receive Date: 20091207
  Receipt Date: 20091202
  Transmission Date: 20100525
  Serious: Yes (Other)
  Sender: FDA-Public Use
  Company Number: US-BRISTOL-MYERS SQUIBB COMPANY-14869549

PATIENT
  Age: 71 Year
  Sex: Female

DRUGS (3)
  1. TAXOL [Suspect]
     Indication: LUNG ADENOCARCINOMA METASTATIC
     Dosage: NO.OF COURSES:02
  2. CARBOPLATIN [Suspect]
     Indication: LUNG CANCER METASTATIC
     Dosage: NO.OF COURSES:02
  3. DEXAMETHASONE TAB [Suspect]
     Indication: LUNG CANCER METASTATIC
     Dosage: NO.OF COURSES:02

REACTIONS (2)
  - COLITIS ISCHAEMIC [None]
  - WHITE BLOOD CELL COUNT INCREASED [None]
